FAERS Safety Report 21392424 (Version 1)
Quarter: 2022Q3

REPORT INFORMATION
  Report Type: Spontaneous
  Country: US (occurrence: None)
  Receive Date: 20220928
  Receipt Date: 20220928
  Transmission Date: 20221027
  Serious: No
  Sender: FDA-Public Use
  Company Number: None

PATIENT
  Age: 81 Year
  Sex: Female
  Weight: 54 kg

DRUGS (5)
  1. XOLAIR [Suspect]
     Active Substance: OMALIZUMAB
     Indication: Asthma
     Dosage: FREQUENCY : MONTHLY;?
     Route: 058
  2. AGGRENOX [Concomitant]
     Active Substance: ASPIRIN\DIPYRIDAMOLE
  3. LISINOPRIL [Concomitant]
     Active Substance: LISINOPRIL
  4. CARVEDILOL [Concomitant]
     Active Substance: CARVEDILOL
  5. SYNTHROID [Concomitant]
     Active Substance: LEVOTHYROXINE SODIUM

REACTIONS (7)
  - Injection site pain [None]
  - Communication disorder [None]
  - Aphasia [None]
  - Confusional state [None]
  - Malaise [None]
  - Influenza like illness [None]
  - Pain [None]

NARRATIVE: CASE EVENT DATE: 20220927
